FAERS Safety Report 22301507 (Version 7)
Quarter: 2023Q4

REPORT INFORMATION
  Report Type: Spontaneous
  Country: US (occurrence: US)
  Receive Date: 20230510
  Receipt Date: 20231026
  Transmission Date: 20240110
  Serious: No
  Sender: FDA-Public Use
  Company Number: US-AMGEN-USASP2023079441

PATIENT
  Age: 68 Year
  Sex: Female

DRUGS (6)
  1. TAVNEOS [Suspect]
     Active Substance: AVACOPAN
     Indication: Bone disorder
     Dosage: 30 MILLIGRAM, BID (TAKE 3 CAPSULES (30 MG) BY MOUTH TWICE DAILY WITH FOOD)
     Route: 048
     Dates: start: 20230417
  2. TAVNEOS [Suspect]
     Active Substance: AVACOPAN
     Indication: Off label use
     Dosage: 30 MILLIGRAM, BID (TAKE 3 CAPSULES (30 MG) BY MOUTH TWICE DAILY WITH FOOD)
     Route: 048
  3. TAVNEOS [Suspect]
     Active Substance: AVACOPAN
     Dosage: 20 MILLIGRAM, BID (2 CAPSULES TWICE DAILY)
     Route: 048
  4. TAVNEOS [Suspect]
     Active Substance: AVACOPAN
     Dosage: 20 MILLIGRAM, BID (TAKE 2 CAPSULES BY MOUTH TWICE DAILY)
     Route: 048
  5. TAVNEOS [Suspect]
     Active Substance: AVACOPAN
     Dosage: 30 MILLIGRAM, BID (TAKE 3 CAPSULES (30 MG) BY MOUTH TWICE DAILY WITH FOOD)
     Route: 048
  6. PREDNISONE [Concomitant]
     Active Substance: PREDNISONE
     Indication: Product used for unknown indication
     Dosage: UNK
     Route: 065

REACTIONS (5)
  - Diarrhoea [Unknown]
  - Gastrooesophageal reflux disease [Unknown]
  - Nausea [Not Recovered/Not Resolved]
  - Headache [Unknown]
  - Off label use [Unknown]

NARRATIVE: CASE EVENT DATE: 20230101
